FAERS Safety Report 4908038-2 (Version None)
Quarter: 2006Q1

REPORT INFORMATION
  Report Type: 
  Country: None (occurrence: None)
  Receive Date: 20060210
  Receipt Date: 20060201
  Transmission Date: 20060701
  Serious: Yes (Other)
  Sender: FDA-Public Use
  Company Number: GB-GLAXOSMITHKLINE-B0408963A

PATIENT

DRUGS (2)
  1. NYTOL ONE A NIGHT CAPLETS 50MG [Suspect]
     Route: 048
     Dates: start: 20060124
  2. EPILIM [Concomitant]
     Indication: EPILEPSY
     Dosage: 300MG TWICE PER DAY
     Route: 048

REACTIONS (1)
  - CONVULSION [None]
